FAERS Safety Report 10046542 (Version 2)
Quarter: 2014Q1

REPORT INFORMATION
  Report Type: Spontaneous
  Country: US (occurrence: US)
  Receive Date: 20140331
  Receipt Date: 20140331
  Transmission Date: 20141002
  Serious: Yes (Death, Other)
  Sender: FDA-Public Use
  Company Number: US-BRISTOL-MYERS SQUIBB COMPANY-18576785

PATIENT
  Age: 74 Year
  Sex: Male

DRUGS (14)
  1. BYETTA PEN DISPOSABLE [Suspect]
     Indication: TYPE 2 DIABETES MELLITUS
     Dates: start: 2005, end: 2006
  2. JANUVIA [Concomitant]
     Indication: TYPE 2 DIABETES MELLITUS
     Dates: start: 200002, end: 201105
  3. RESTORIL [Concomitant]
  4. ATARAX [Concomitant]
  5. GLUMETZA [Concomitant]
  6. LACTINEX [Concomitant]
  7. SORBITOL [Concomitant]
  8. SYNTHROID [Concomitant]
  9. VITAMIN D [Concomitant]
  10. ARICEPT [Concomitant]
  11. NAMENDA [Concomitant]
  12. TEKTURNA [Concomitant]
  13. ZONEGRAN [Concomitant]
  14. CELEXA [Concomitant]

REACTIONS (1)
  - Pancreatic carcinoma [Fatal]
